FAERS Safety Report 20008164 (Version 2)
Quarter: 2023Q1

REPORT INFORMATION
  Report Type: Spontaneous
  Country: PT (occurrence: PT)
  Receive Date: 20211029
  Receipt Date: 20230117
  Transmission Date: 20230417
  Serious: Yes (Other)
  Sender: FDA-Public Use
  Company Number: PT-BEH-2021137226

PATIENT
  Age: 83 Year
  Sex: Female

DRUGS (2)
  1. FIBRINOGEN HUMAN [Suspect]
     Active Substance: FIBRINOGEN HUMAN
     Indication: Fluid replacement
     Dosage: 4 GRAM
     Route: 065
  2. TRANEXAMIC ACID [Suspect]
     Active Substance: TRANEXAMIC ACID
     Indication: Fluid replacement
     Dosage: 1 GRAM, IN 8 HOURS
     Route: 065

REACTIONS (4)
  - Transfusion-related circulatory overload [Unknown]
  - Hypertension [Unknown]
  - Tachycardia [Unknown]
  - Jugular vein distension [Unknown]
